FAERS Safety Report 15988187 (Version 1)
Quarter: 2019Q1

REPORT INFORMATION
  Report Type: Spontaneous
  Country: US (occurrence: US)
  Receive Date: 20190221
  Receipt Date: 20190221
  Transmission Date: 20190418
  Serious: No
  Sender: FDA-Public Use
  Company Number: US-SHIRE-US201905713

PATIENT
  Sex: Female

DRUGS (1)
  1. XIIDRA [Suspect]
     Active Substance: LIFITEGRAST
     Indication: DRY EYE
     Route: 047

REACTIONS (8)
  - Dysgeusia [Unknown]
  - Dry eye [Unknown]
  - Migraine [Unknown]
  - Swollen tear duct [Unknown]
  - Instillation site erythema [Unknown]
  - Dry mouth [Unknown]
  - Drug ineffective [Unknown]
  - Sinus congestion [Unknown]
